FAERS Safety Report 7727092-6 (Version None)
Quarter: 2011Q3

REPORT INFORMATION
  Report Type: 
  Country: None (occurrence: None)
  Receive Date: 20110831
  Receipt Date: 20110816
  Transmission Date: 20111222
  Serious: Yes (Other)
  Sender: FDA-Public Use
  Company Number: MC201100332

PATIENT

DRUGS (1)
  1. ANGIOMAX [Suspect]
     Indication: CARDIAC OPERATION
     Dosage: INTRAVENOUS
     Route: 042

REACTIONS (2)
  - UNEVALUABLE EVENT [None]
  - OFF LABEL USE [None]
